FAERS Safety Report 18687515 (Version 1)
Quarter: 2020Q4

REPORT INFORMATION
  Report Type: Spontaneous
  Country: US (occurrence: US)
  Receive Date: 20201229
  Receipt Date: 20201229
  Transmission Date: 20210114
  Serious: Yes (Other)
  Sender: FDA-Public Use
  Company Number: None

PATIENT
  Age: 79 Year
  Sex: Female

DRUGS (16)
  1. BUMEX [Concomitant]
     Active Substance: BUMETANIDE
  2. ERGOCALCIFEROL. [Concomitant]
     Active Substance: ERGOCALCIFEROL
  3. LEVOTHYROXINE SODIUM. [Concomitant]
     Active Substance: LEVOTHYROXINE SODIUM
  4. LYRICA [Concomitant]
     Active Substance: PREGABALIN
  5. METOLAZONE. [Concomitant]
     Active Substance: METOLAZONE
  6. VITAMIN B12 [Concomitant]
     Active Substance: CYANOCOBALAMIN
  7. AZO CRANBERY URINARY TRAC [Concomitant]
  8. TRAMADOL HCL [Concomitant]
     Active Substance: TRAMADOL HYDROCHLORIDE
  9. VITAMIN C [Concomitant]
     Active Substance: ASCORBIC ACID
  10. CARVEDILOL. [Concomitant]
     Active Substance: CARVEDILOL
  11. ONDANSETRON HCL [Concomitant]
     Active Substance: ONDANSETRON HYDROCHLORIDE
  12. POTASSIUM [Concomitant]
     Active Substance: POTASSIUM
  13. IMATINIB 400 MG TABS [Suspect]
     Active Substance: IMATINIB MESYLATE
     Indication: CHRONIC MYELOID LEUKAEMIA
     Route: 048
     Dates: start: 20170321
  14. CEPHALEXIN. [Concomitant]
     Active Substance: CEPHALEXIN
  15. OCUVITE/LUTEIN [Concomitant]
  16. OMEPRAZOLE. [Concomitant]
     Active Substance: OMEPRAZOLE

REACTIONS (1)
  - Myocardial infarction [None]
